FAERS Safety Report 6066405-0 (Version None)
Quarter: 2009Q1

REPORT INFORMATION
  Report Type: 
  Country: None (occurrence: None)
  Receive Date: 20090205
  Receipt Date: 20090127
  Transmission Date: 20090719
  Serious: Yes (Other)
  Sender: FDA-Public Use
  Company Number: FR-PFIZER INC-2008158378

PATIENT

DRUGS (4)
  1. ATORVASTATIN CALCIUM [Suspect]
     Indication: HYPERCHOLESTEROLAEMIA
     Dates: start: 20060401, end: 20070801
  2. QUININE [Concomitant]
     Dosage: UNK
  3. ALFUZOSIN HYDROCHLORIDE [Concomitant]
     Dosage: UNK
  4. THIAMINE HYDROCHLORIDE [Suspect]

REACTIONS (4)
  - MYALGIA [None]
  - TENDON PAIN [None]
  - TENDON RUPTURE [None]
  - TENDONITIS [None]
